FAERS Safety Report 19284272 (Version 1)
Quarter: 2021Q2

REPORT INFORMATION
  Report Type: Spontaneous
  Country: GB (occurrence: GB)
  Receive Date: 20210521
  Receipt Date: 20210521
  Transmission Date: 20210717
  Serious: Yes (Disabling, Other)
  Sender: FDA-Public Use
  Company Number: GB-TEVA-2021-XI-1912991

PATIENT
  Age: 52 Year
  Sex: Female
  Weight: 71.66 kg

DRUGS (6)
  1. OMEPRAZOLE. [Suspect]
     Active Substance: OMEPRAZOLE
     Indication: HIATUS HERNIA
     Dosage: 30 MG
     Route: 048
     Dates: start: 19960101, end: 20210101
  2. FORSTEO [Concomitant]
     Active Substance: TERIPARATIDE
  3. ADCAL?D3 [Concomitant]
     Active Substance: CALCIUM CARBONATE\CHOLECALCIFEROL
  4. SALBUTAMOL [Concomitant]
     Active Substance: ALBUTEROL
  5. LANSOPRAZOLE. [Suspect]
     Active Substance: LANSOPRAZOLE
     Indication: HIATUS HERNIA
     Dosage: 30 MG
     Route: 048
     Dates: start: 19960101, end: 20210101
  6. RELVAR ELLIPTA [Concomitant]
     Active Substance: FLUTICASONE FUROATE\VILANTEROL TRIFENATATE
     Route: 055

REACTIONS (2)
  - Spinal fracture [Not Recovered/Not Resolved]
  - Osteoporosis [Not Recovered/Not Resolved]

NARRATIVE: CASE EVENT DATE: 20170701
